FAERS Safety Report 6460848-9 (Version None)
Quarter: 2009Q4

REPORT INFORMATION
  Report Type: 
  Country: None (occurrence: None)
  Receive Date: 20091130
  Receipt Date: 20091119
  Transmission Date: 20100525
  Serious: Yes (Other)
  Sender: FDA-Public Use
  Company Number: JP-PFIZER INC-2009293362

PATIENT
  Age: 65 Year
  Sex: Male

DRUGS (6)
  1. SELARA [Suspect]
     Dosage: 50 MG DAILY
     Route: 048
     Dates: start: 20091001, end: 20091102
  2. ACTOS [Concomitant]
     Route: 048
  3. SLOW-K [Concomitant]
     Route: 048
  4. DEPAKENE [Concomitant]
  5. NIFEDIPINE [Concomitant]
  6. ARTIST [Concomitant]

REACTIONS (1)
  - RHABDOMYOLYSIS [None]
